FAERS Safety Report 8499946-7 (Version None)
Quarter: 2012Q3

REPORT INFORMATION
  Report Type: 
  Country: None (occurrence: None)
  Receive Date: 20120710
  Receipt Date: 20120703
  Transmission Date: 20120928
  Serious: Yes (Other)
  Sender: FDA-Public Use
  Company Number: US-BAYER-2012-018050

PATIENT
  Age: 42 Year
  Sex: Female

DRUGS (3)
  1. SPIRONOLACTONE [Concomitant]
  2. YASMIN [Suspect]
     Indication: ACNE
     Dosage: UNK
     Dates: start: 20091101, end: 20100901
  3. DROSPIRENONE AND ETHINYL ESTRADIOL [Suspect]
     Indication: ACNE
     Dosage: UNK
     Dates: start: 20091101, end: 20100901

REACTIONS (1)
  - DEEP VEIN THROMBOSIS [None]
